FAERS Safety Report 11689244 (Version 1)
Quarter: 2015Q4

REPORT INFORMATION
  Report Type: Spontaneous
  Country: US (occurrence: None)
  Receive Date: 20151030
  Receipt Date: 20151030
  Transmission Date: 20160304
  Serious: No
  Sender: FDA-Public Use
  Company Number: None

PATIENT
  Age: 49 Year
  Sex: Female

DRUGS (1)
  1. HUMIRA [Suspect]
     Active Substance: ADALIMUMAB
     Indication: PRODUCT USED FOR UNKNOWN INDICATION
     Dosage: INJECTABLE
     Route: 058

REACTIONS (4)
  - Joint swelling [None]
  - Rash [None]
  - Fatigue [None]
  - Swelling face [None]

NARRATIVE: CASE EVENT DATE: 20151029
